FAERS Safety Report 5623001-4 (Version None)
Quarter: 2008Q1

REPORT INFORMATION
  Report Type: 
  Country: None (occurrence: None)
  Receive Date: 20080207
  Receipt Date: 20080125
  Transmission Date: 20080703
  Serious: Yes (Other)
  Sender: FDA-Public Use
  Company Number: MIN_00279

PATIENT
  Age: 47 Year
  Sex: Male

DRUGS (1)
  1. MINOCYCLINE HCL [Suspect]
     Indication: ACNE
     Dosage: PO
     Route: 048

REACTIONS (2)
  - PIGMENTATION DISORDER [None]
  - THYROID ADENOMA [None]
